FAERS Safety Report 8888522 (Version 1)
Quarter: 2012Q4

REPORT INFORMATION
  Report Type: 
  Country: FR (occurrence: FR)
  Receive Date: 20121106
  Receipt Date: 20121106
  Transmission Date: 20130627
  Serious: Yes (Hospitalization, Other)
  Sender: FDA-Public Use
  Company Number: FR-ASTRAZENECA-2012SE83188

PATIENT
  Age: 8370 Day
  Sex: Male

DRUGS (3)
  1. MERONEM [Suspect]
     Route: 042
     Dates: start: 20120817, end: 20120820
  2. DEPAKOTE [Interacting]
     Route: 048
     Dates: start: 201112
  3. TIENAM [Interacting]
     Indication: PROSTATE INFECTION
     Route: 042
     Dates: start: 20120809, end: 20120816

REACTIONS (4)
  - Drug interaction [Recovered/Resolved]
  - Pyrexia [Recovered/Resolved]
  - Culture urine positive [Recovered/Resolved]
  - Convulsion [Recovered/Resolved]
